FAERS Safety Report 14201311 (Version 1)
Quarter: 2017Q4

REPORT INFORMATION
  Report Type: Spontaneous
  Country: US (occurrence: US)
  Receive Date: 20171117
  Receipt Date: 20171117
  Transmission Date: 20180321
  Serious: No
  Sender: FDA-Public Use
  Company Number: US-PERRIGO-17US001187

PATIENT
  Age: 5 Month
  Sex: Female
  Weight: 9.98 kg

DRUGS (1)
  1. POLYETHYLENE GLYCOL 3350. [Suspect]
     Active Substance: POLYETHYLENE GLYCOL 3350
     Indication: FAECALOMA
     Dosage: APPROXIMATELY 8.5 G, QD
     Route: 048
     Dates: start: 201512

REACTIONS (3)
  - Incorrect drug administration duration [Not Recovered/Not Resolved]
  - Off label use [Not Recovered/Not Resolved]
  - Drug administered to patient of inappropriate age [Not Recovered/Not Resolved]

NARRATIVE: CASE EVENT DATE: 201512
